FAERS Safety Report 10340272 (Version 2)
Quarter: 2014Q3

REPORT INFORMATION
  Report Type: Spontaneous
  Country: CN (occurrence: CN)
  Receive Date: 20140724
  Receipt Date: 20140821
  Transmission Date: 20150326
  Serious: Yes (Hospitalization, Other)
  Sender: FDA-Public Use
  Company Number: CN-GILEAD-2014-0109704

PATIENT
  Age: 82 Year
  Sex: Female
  Weight: 70 kg

DRUGS (4)
  1. VIAGRA [Suspect]
     Active Substance: SILDENAFIL CITRATE
     Indication: PULMONARY ARTERIAL HYPERTENSION
     Dosage: 1.66TAB PER DAY
     Route: 048
     Dates: start: 2007
  2. AMBRISENTAN [Suspect]
     Active Substance: AMBRISENTAN
     Indication: PULMONARY ARTERIAL HYPERTENSION
     Dosage: .5TAB PER DAY
     Route: 048
     Dates: start: 2013, end: 201311
  3. WARFARIN [Suspect]
     Active Substance: WARFARIN
     Indication: COAGULOPATHY
     Route: 048
  4. AMBRISENTAN [Suspect]
     Active Substance: AMBRISENTAN
     Dosage: UNK
     Route: 048
     Dates: start: 201401

REACTIONS (11)
  - Chest discomfort [Recovering/Resolving]
  - Cardiac discomfort [Recovering/Resolving]
  - Suspected counterfeit product [Unknown]
  - Oedema peripheral [Recovering/Resolving]
  - Drug ineffective [Unknown]
  - Oedema [Recovering/Resolving]
  - Haematochezia [Recovered/Resolved]
  - Micturition disorder [Recovering/Resolving]
  - Product quality issue [Unknown]
  - Pulmonary hypertension [Recovered/Resolved]
  - Diarrhoea [Recovering/Resolving]

NARRATIVE: CASE EVENT DATE: 2013
